FAERS Safety Report 7475433-X (Version None)
Quarter: 2011Q1

REPORT INFORMATION
  Report Type: 
  Country: None (occurrence: None)
  Receive Date: 20110308
  Receipt Date: 20100601
  Transmission Date: 20110831
  Serious: Yes (Hospitalization, Other)
  Sender: FDA-Public Use
  Company Number: THYM-1001528

PATIENT
  Age: 28 Year
  Sex: Female

DRUGS (7)
  1. VALCYTE [Concomitant]
  2. SOLU-MEDROL [Concomitant]
  3. PROGRAF [Concomitant]
  4. BACTRIM [Concomitant]
  5. MYFORTIC [Concomitant]
  6. THYMOGLOBULIN [Suspect]
     Indication: PROPHYLAXIS AGAINST TRANSPLANT REJECTION
     Dosage: 85 MG, QD, INTRAVENOUS
     Route: 042
     Dates: start: 20100511, end: 20100514
  7. PREDNISONE [Concomitant]

REACTIONS (3)
  - KIDNEY TRANSPLANT REJECTION [None]
  - URINARY TRACT INFECTION [None]
  - DRUG INEFFECTIVE [None]
